FAERS Safety Report 7405947-X (Version None)
Quarter: 2011Q2

REPORT INFORMATION
  Report Type: 
  Country: None (occurrence: None)
  Receive Date: 20110405
  Receipt Date: 20110405
  Transmission Date: 20111010
  Serious: No
  Sender: FDA-Public Use
  Company Number: None

PATIENT
  Age: 58 Year
  Sex: Male
  Weight: 77.5651 kg

DRUGS (2)
  1. GLYBURIDE AND METFORMIN HYDROCHLORIDE [Suspect]
  2. GLYBURIDE AND METFORMIN HYDROCHLORIDE [Suspect]
     Indication: TYPE 2 DIABETES MELLITUS
     Dosage: 1 3 TIMES DAILY
     Dates: start: 20091201, end: 20101201

REACTIONS (5)
  - PRODUCT SUBSTITUTION ISSUE [None]
  - PRODUCT COLOUR ISSUE [None]
  - BLOOD GLUCOSE INCREASED [None]
  - GLYCOSYLATED HAEMOGLOBIN INCREASED [None]
  - PRODUCT ODOUR ABNORMAL [None]
